FAERS Safety Report 10043357 (Version 2)
Quarter: 2014Q2

REPORT INFORMATION
  Report Type: Spontaneous
  Country: GB (occurrence: None)
  Receive Date: 20140326
  Receipt Date: 20140507
  Transmission Date: 20141212
  Serious: Yes (Hospitalization, Other)
  Sender: FDA-Public Use
  Company Number: AUR-APL-2014-03445

PATIENT
  Sex: Male

DRUGS (2)
  1. SERTRALINE [Suspect]
     Indication: PRODUCT USED FOR UNKNOWN INDICATION
     Dates: start: 201310, end: 201402
  2. WARFARIN [Concomitant]

REACTIONS (7)
  - Oedema peripheral [None]
  - Cough [None]
  - Renal impairment [None]
  - Ear discomfort [None]
  - Decreased appetite [None]
  - Vomiting [None]
  - Proteinuria [None]
